FAERS Safety Report 10923240 (Version 4)
Quarter: 2015Q4

REPORT INFORMATION
  Report Type: Spontaneous
  Country: ES (occurrence: ES)
  Receive Date: 20150317
  Receipt Date: 20151104
  Transmission Date: 20160304
  Serious: Yes (Hospitalization, Other)
  Sender: FDA-Public Use
  Company Number: ES-AMGEN-ESPSP2014048389

PATIENT
  Age: 66 Year
  Sex: Female

DRUGS (11)
  1. ENBREL [Suspect]
     Active Substance: ETANERCEPT
     Dosage: 25 MG, WEEKLY
     Route: 058
  2. INDAPAMIDE. [Concomitant]
     Active Substance: INDAPAMIDE
     Dosage: UNK
  3. ENBREL [Suspect]
     Active Substance: ETANERCEPT
     Indication: PSORIATIC ARTHROPATHY
     Dosage: 50 MG, WEEKLY (ON TUESDAYS)
     Route: 058
     Dates: start: 20140603
  4. ADIRO [Concomitant]
     Active Substance: ASPIRIN
     Indication: ARRHYTHMIA
     Dosage: 100 MG, ONCE DAILY
  5. ADIRO [Concomitant]
     Active Substance: ASPIRIN
     Indication: TACHYCARDIA
     Dosage: UNK
  6. SIMVASTATIN. [Concomitant]
     Active Substance: SIMVASTATIN
     Indication: HYPERCHOLESTEROLAEMIA
     Dosage: 10 MG, ONCE DAILY
  7. ENBREL [Suspect]
     Active Substance: ETANERCEPT
     Dosage: 50 MG, WEEKLY (ON MONDAY)
     Route: 058
  8. ENBREL [Suspect]
     Active Substance: ETANERCEPT
     Dosage: 50 MG, WEEKLY (ON TUESDAYS)
     Route: 058
  9. INDAPAMIDE. [Concomitant]
     Active Substance: INDAPAMIDE
     Indication: HYPERTENSION
     Dosage: 1.5 MG, ONCE DAILY
  10. ENBREL [Suspect]
     Active Substance: ETANERCEPT
     Dosage: 25 MG, WEEKLY
     Route: 058
     Dates: start: 201501
  11. SIMVASTATIN. [Concomitant]
     Active Substance: SIMVASTATIN
     Indication: TACHYCARDIA
     Dosage: UNK

REACTIONS (15)
  - Tibia fracture [Recovered/Resolved]
  - Cellulitis [Recovered/Resolved]
  - Influenza [Recovered/Resolved]
  - Mobility decreased [Recovered/Resolved]
  - Infection [Recovered/Resolved]
  - Injection site erythema [Recovered/Resolved]
  - Injection site swelling [Recovered/Resolved]
  - Injection site warmth [Recovered/Resolved]
  - Fall [Recovered/Resolved]
  - Immunosuppression [Unknown]
  - Disease recurrence [Recovered/Resolved]
  - Varicose vein [Not Recovered/Not Resolved]
  - Tinnitus [Recovering/Resolving]
  - Injection site induration [Recovered/Resolved]
  - Injection site pain [Recovered/Resolved]

NARRATIVE: CASE EVENT DATE: 2014
